FAERS Safety Report 9449780 (Version 1)
Quarter: 2013Q3

REPORT INFORMATION
  Report Type: Spontaneous
  Country: US (occurrence: US)
  Receive Date: 20130809
  Receipt Date: 20130809
  Transmission Date: 20140515
  Serious: Yes (Life-Threatening, Hospitalization, Other)
  Sender: FDA-Public Use
  Company Number: US-ASTRAZENECA-2013SE62200

PATIENT
  Age: 72 Year
  Sex: Female

DRUGS (1)
  1. SYMBICORT [Suspect]
     Indication: CHRONIC OBSTRUCTIVE PULMONARY DISEASE
     Dosage: 160/4.5, TWO INHALATIONS TWICE DAILY
     Route: 055

REACTIONS (4)
  - Intracranial aneurysm [Recovering/Resolving]
  - Coma [Recovering/Resolving]
  - Memory impairment [Unknown]
  - Pneumonia [Unknown]
